FAERS Safety Report 24355936 (Version 1)
Quarter: 2024Q3

REPORT INFORMATION
  Report Type: Spontaneous
  Country: US (occurrence: US)
  Receive Date: 20240924
  Receipt Date: 20240924
  Transmission Date: 20241016
  Serious: Yes (Other)
  Sender: CHATTEM
  Company Number: US-OPELLA-2024OHG032695

PATIENT
  Sex: Male

DRUGS (1)
  1. TALC [Suspect]
     Active Substance: TALC
     Indication: Product used for unknown indication

REACTIONS (8)
  - Lung neoplasm malignant [Unknown]
  - Mesothelioma [Unknown]
  - Pain [Unknown]
  - Exposure to chemical pollution [Unknown]
  - Emotional distress [Unknown]
  - Anxiety [Unknown]
  - Injury [Unknown]
  - Discomfort [Unknown]

NARRATIVE: CASE EVENT DATE: 20230808
